FAERS Safety Report 5737229-6 (Version None)
Quarter: 2008Q2

REPORT INFORMATION
  Report Type: 
  Country: None (occurrence: None)
  Receive Date: 20080514
  Receipt Date: 20080507
  Transmission Date: 20081010
  Serious: Yes (Other)
  Sender: FDA-Public Use
  Company Number: PHHY2008AU05391

PATIENT
  Age: 61 Year
  Sex: Female

DRUGS (5)
  1. XELODA [Concomitant]
     Indication: BREAST CANCER
     Dosage: 1500 MG, BID
     Dates: start: 20071022, end: 20071119
  2. EPIRUBICIN [Concomitant]
     Dates: start: 20071210
  3. CLINDAMYCIN HCL [Concomitant]
     Indication: OSTEONECROSIS
     Dates: start: 20080114, end: 20080130
  4. AREDIA [Suspect]
     Indication: METASTASES TO BONE
     Dosage: 90 MG, Q4/52
     Dates: start: 20030701, end: 20040301
  5. ZOMETA [Suspect]
     Indication: METASTASES TO BONE
     Dosage: 4 MG Q6/52
     Dates: start: 20040401, end: 20080101

REACTIONS (8)
  - BONE LESION [None]
  - ERYTHEMA [None]
  - FISTULA [None]
  - MOUTH ULCERATION [None]
  - OSTEONECROSIS [None]
  - OSTEOPENIA [None]
  - PAIN [None]
  - SWELLING [None]
